FAERS Safety Report 9598569 (Version 2)
Quarter: 2013Q4

REPORT INFORMATION
  Report Type: Spontaneous
  Country: US (occurrence: US)
  Receive Date: 20131004
  Receipt Date: 20131004
  Transmission Date: 20140711
  Serious: No
  Sender: FDA-Public Use
  Company Number: US-AMGEN-USASP2013019580

PATIENT
  Age: 36 Year
  Sex: Female
  Weight: 61.22 kg

DRUGS (7)
  1. ENBREL [Suspect]
     Indication: PRODUCT USED FOR UNKNOWN INDICATION
     Dosage: 50 MG, QWK
  2. FOLIC ACID [Concomitant]
     Dosage: 1 MG, UNK
  3. LEVOTHYROXIN [Concomitant]
     Dosage: 100 MUG, UNK
  4. FLAXSEED OIL [Concomitant]
     Dosage: UNK
  5. VITAMIN D3 [Concomitant]
     Dosage: 5000 UNIT, UNK
  6. HYDROCORTISON                      /00028601/ [Concomitant]
     Dosage: UNK
  7. MULTIVITAMINS, PLAIN [Concomitant]
     Dosage: UNK

REACTIONS (6)
  - Injection site reaction [Unknown]
  - Injection site pain [Unknown]
  - Injection site erythema [Unknown]
  - Injection site irritation [Unknown]
  - Injection site pruritus [Unknown]
  - Injection site bruising [Unknown]
